FAERS Safety Report 17098356 (Version 1)
Quarter: 2019Q4

REPORT INFORMATION
  Report Type: Spontaneous
  Country: CN (occurrence: CN)
  Receive Date: 20191202
  Receipt Date: 20191202
  Transmission Date: 20200122
  Serious: Yes (Other)
  Sender: FDA-Public Use
  Company Number: CN-PFIZER INC-2019514667

PATIENT
  Age: 26 Year
  Sex: Male
  Weight: 80 kg

DRUGS (2)
  1. SODIUM CHLORIDE. [Concomitant]
     Active Substance: SODIUM CHLORIDE
     Dosage: 100 ML, 3X/DAY (Q8H)
     Route: 041
     Dates: start: 20191111, end: 20191114
  2. MEPEM [Suspect]
     Active Substance: MEROPENEM
     Indication: PNEUMONIA
     Dosage: 2 G, 3X/DAY (Q8H)
     Route: 041
     Dates: start: 20191111, end: 20191114

REACTIONS (2)
  - Platelet count decreased [Recovering/Resolving]
  - Prothrombin time prolonged [Recovering/Resolving]

NARRATIVE: CASE EVENT DATE: 20191113
